FAERS Safety Report 24105476 (Version 1)
Quarter: 2024Q3

REPORT INFORMATION
  Report Type: Spontaneous
  Country: US (occurrence: US)
  Receive Date: 20240717
  Receipt Date: 20240717
  Transmission Date: 20241017
  Serious: Yes (Death)
  Sender: TEIKOKU
  Company Number: US-TPU-TPU-2024-00381

PATIENT
  Sex: Female

DRUGS (5)
  1. LIDOCAINE [Suspect]
     Active Substance: LIDOCAINE
     Indication: Arthritis
  2. ORENCIA [Concomitant]
     Active Substance: ABATACEPT
  3. medication for blood pressure [Concomitant]
  4. medication for thyroid [Concomitant]
  5. medication for cholesterol [Concomitant]

REACTIONS (1)
  - Death [Fatal]

NARRATIVE: CASE EVENT DATE: 20190101
